FAERS Safety Report 20069079 (Version 1)
Quarter: 2021Q4

REPORT INFORMATION
  Report Type: Spontaneous
  Country: CN (occurrence: CN)
  Receive Date: 20211115
  Receipt Date: 20211115
  Transmission Date: 20220303
  Serious: Yes (Hospitalization, Other)
  Sender: FDA-Public Use
  Company Number: CN-PFIZER INC-202101528085

PATIENT
  Age: 12 Year
  Sex: Female
  Weight: 38 kg

DRUGS (1)
  1. CYTARABINE [Suspect]
     Active Substance: CYTARABINE
     Indication: Acute monocytic leukaemia
     Dosage: 2.42 G, 1X/DAY
     Route: 041
     Dates: start: 20211030, end: 20211103

REACTIONS (9)
  - Myelosuppression [Not Recovered/Not Resolved]
  - Cytarabine syndrome [Not Recovered/Not Resolved]
  - Flushing [Recovering/Resolving]
  - Infection [Not Recovered/Not Resolved]
  - Pyrexia [Unknown]
  - Vomiting [Unknown]
  - Dizziness [Unknown]
  - Chest pain [Unknown]
  - Mental fatigue [Unknown]

NARRATIVE: CASE EVENT DATE: 20211031
